FAERS Safety Report 9719908 (Version 1)
Quarter: 2013Q4

REPORT INFORMATION
  Report Type: Spontaneous
  Country: FR (occurrence: FR)
  Receive Date: 20131128
  Receipt Date: 20131128
  Transmission Date: 20140711
  Serious: Yes (Disabling, Other)
  Sender: FDA-Public Use
  Company Number: FR-009507513-1311FRA008929

PATIENT
  Age: 45 Year
  Sex: Female

DRUGS (2)
  1. CYCLEANE 20 [Suspect]
     Indication: ORAL CONTRACEPTION
     Dosage: 20 MICROGRAM, QD
     Route: 048
     Dates: start: 19990412, end: 20110726
  2. CELESTENE [Suspect]
     Dosage: 2 MG, QD
     Route: 048
     Dates: start: 20090212, end: 20090215

REACTIONS (1)
  - Osteonecrosis [Recovered/Resolved with Sequelae]
